FAERS Safety Report 26130061 (Version 2)
Quarter: 2025Q4

REPORT INFORMATION
  Report Type: Spontaneous
  Country: US (occurrence: US)
  Receive Date: 20251208
  Receipt Date: 20251224
  Transmission Date: 20260118
  Serious: Yes (Life-Threatening, Hospitalization)
  Sender: TEVA
  Company Number: US-TEVA-VS-3399416

PATIENT
  Age: 6 Decade
  Sex: Female

DRUGS (5)
  1. ESCITALOPRAM [Suspect]
     Active Substance: ESCITALOPRAM OXALATE
     Indication: Mood swings
     Route: 065
  2. CODEINE [Suspect]
     Active Substance: CODEINE
     Indication: Cough
     Route: 065
  3. METHYLENE BLUE [Interacting]
     Active Substance: METHYLENE BLUE
     Indication: Confusional state
     Route: 065
  4. GUAIFENESIN [Concomitant]
     Active Substance: GUAIFENESIN
     Indication: Cough
     Route: 065
  5. IFOSFAMIDE [Interacting]
     Active Substance: IFOSFAMIDE
     Indication: Metastases to lung
     Route: 065

REACTIONS (4)
  - Serotonin syndrome [Recovering/Resolving]
  - Drug ineffective [Unknown]
  - Neurotoxicity [Recovering/Resolving]
  - Drug interaction [Unknown]
